FAERS Safety Report 7188596-0 (Version None)
Quarter: 2010Q4

REPORT INFORMATION
  Report Type: 
  Country: None (occurrence: None)
  Receive Date: 20101222
  Receipt Date: 20100723
  Transmission Date: 20110411
  Serious: No
  Sender: FDA-Public Use
  Company Number: US-AMGEN-KDL425101

PATIENT

DRUGS (3)
  1. ENBREL [Suspect]
     Indication: PRODUCT USED FOR UNKNOWN INDICATION
     Dosage: 50 MG, QWK
     Dates: start: 20090101
  2. METHOTREXATE [Concomitant]
     Dosage: UNK UNK, UNK
     Dates: start: 20090101
  3. LEVOTHYROXINE SODIUM [Concomitant]
     Dosage: UNK UNK, UNK

REACTIONS (3)
  - HYPERTHYROIDISM [None]
  - LIVER FUNCTION TEST ABNORMAL [None]
  - THYROID FUNCTION TEST ABNORMAL [None]
